FAERS Safety Report 6237009-1 (Version None)
Quarter: 2009Q2

REPORT INFORMATION
  Report Type: 
  Country: None (occurrence: None)
  Receive Date: 20090619
  Receipt Date: 20090323
  Transmission Date: 20091009
  Serious: No
  Sender: FDA-Public Use
  Company Number: US-ASTRAZENECA-2009UW07316

PATIENT
  Age: 927 Month
  Sex: Female
  Weight: 73.9 kg

DRUGS (5)
  1. SYMBICORT [Suspect]
     Indication: ASTHMA
     Dosage: 2  PUFFS
     Route: 055
     Dates: start: 20090301
  2. COMBIVENT [Concomitant]
  3. LEVOTHYROXINE SODIUM [Concomitant]
  4. POTASSIUM CHLORIDE [Concomitant]
  5. INDAPAMIDE [Concomitant]

REACTIONS (2)
  - MYALGIA [None]
  - PHARYNGEAL DISORDER [None]
